FAERS Safety Report 7455045-4 (Version None)
Quarter: 2011Q2

REPORT INFORMATION
  Report Type: 
  Country: None (occurrence: None)
  Receive Date: 20110503
  Receipt Date: 20110422
  Transmission Date: 20111010
  Serious: Yes (Hospitalization, Other)
  Sender: FDA-Public Use
  Company Number: US-SANOFI-AVENTIS-2010SA014322

PATIENT
  Age: 77 Year
  Sex: Male

DRUGS (11)
  1. COUMADIN [Concomitant]
     Dosage: 4 MG FOUR DAYS PER WEEK, 3.5 MG THREE DAYS PER WEEK
     Route: 048
  2. TOPROL-XL [Concomitant]
     Route: 048
  3. MULTAQ [Suspect]
     Indication: ATRIAL FIBRILLATION
     Route: 048
     Dates: start: 20100307, end: 20100309
  4. MULTAQ [Suspect]
     Indication: SICK SINUS SYNDROME
     Route: 048
     Dates: start: 20100307, end: 20100309
  5. MULTAQ [Suspect]
     Route: 048
     Dates: start: 20100310, end: 20100311
  6. MULTAQ [Suspect]
     Route: 048
     Dates: start: 20100310, end: 20100311
  7. MULTAQ [Suspect]
     Route: 048
     Dates: start: 20100312
  8. CRESTOR [Concomitant]
     Route: 048
  9. SYNTHROID [Concomitant]
     Route: 048
  10. MULTAQ [Suspect]
     Route: 048
     Dates: start: 20100312
  11. PREDNISONE [Concomitant]
     Route: 048

REACTIONS (11)
  - UPPER RESPIRATORY TRACT INFECTION [None]
  - PYREXIA [None]
  - PNEUMONIA [None]
  - EJECTION FRACTION DECREASED [None]
  - BLOOD POTASSIUM DECREASED [None]
  - DYSPNOEA [None]
  - FATIGUE [None]
  - ANXIETY [None]
  - CARDIAC FAILURE CONGESTIVE [None]
  - OFF LABEL USE [None]
  - ATRIAL FIBRILLATION [None]
